FAERS Safety Report 13676179 (Version 14)
Quarter: 2019Q2

REPORT INFORMATION
  Report Type: Report from Study
  Country: None (occurrence: US)
  Receive Date: 20170622
  Receipt Date: 20190514
  Transmission Date: 20190711
  Serious: Yes (Hospitalization, Other)
  Sender: FDA-Public Use
  Company Number: US-ABBVIE-17K-163-2013009-00

PATIENT
  Age: 55 Year
  Sex: Female
  Weight: 100.33 kg

DRUGS (13)
  1. HUMIRA [Suspect]
     Active Substance: ADALIMUMAB
     Indication: RHEUMATOID ARTHRITIS
     Route: 058
     Dates: start: 201604, end: 201704
  2. FORTEO [Concomitant]
     Active Substance: TERIPARATIDE
     Indication: OSTEOPOROSIS
     Dates: start: 2016
  3. METHOTREXATE. [Suspect]
     Active Substance: METHOTREXATE
     Indication: RHEUMATOID ARTHRITIS
     Route: 065
  4. EUROGESIC [Concomitant]
     Indication: PAIN
  5. CORTEF [Concomitant]
     Active Substance: HYDROCORTISONE
     Indication: ADDISON^S DISEASE
  6. HUMIRA [Suspect]
     Active Substance: ADALIMUMAB
     Indication: ANKYLOSING SPONDYLITIS
     Route: 058
     Dates: start: 201704
  7. HUMIRA [Suspect]
     Active Substance: ADALIMUMAB
     Route: 058
  8. VITAMIN D [Concomitant]
     Active Substance: VITAMIN D NOS
     Indication: VITAMIN D DEFICIENCY
  9. LYRICA [Concomitant]
     Active Substance: PREGABALIN
     Indication: MYALGIA
  10. PANTOPRAZOLE [Concomitant]
     Active Substance: PANTOPRAZOLE
     Indication: GASTROOESOPHAGEAL REFLUX DISEASE
  11. HYDROMORPHONE [Concomitant]
     Active Substance: HYDROMORPHONE
     Indication: PAIN
  12. DIAZEPAM. [Concomitant]
     Active Substance: DIAZEPAM
     Indication: MUSCLE SPASMS
  13. LEVOTHYROXINE. [Concomitant]
     Active Substance: LEVOTHYROXINE
     Indication: HYPOTHYROIDISM

REACTIONS (34)
  - Loss of consciousness [Recovered/Resolved]
  - Hypophagia [Unknown]
  - Post procedural complication [Unknown]
  - Contusion [Unknown]
  - Iron deficiency anaemia [Unknown]
  - Tooth infection [Recovered/Resolved]
  - Joint range of motion decreased [Unknown]
  - Injection site pain [Unknown]
  - Haemoglobin decreased [Recovered/Resolved]
  - Fall [Recovered/Resolved]
  - Fluid intake reduced [Unknown]
  - Spinal disorder [Unknown]
  - Bone marrow failure [Not Recovered/Not Resolved]
  - Blood iron decreased [Unknown]
  - Chronic kidney disease [Unknown]
  - Intra-abdominal fluid collection [Unknown]
  - Mobility decreased [Unknown]
  - Myalgia [Recovered/Resolved]
  - Pain in extremity [Recovering/Resolving]
  - Blindness [Unknown]
  - Cardiac murmur [Unknown]
  - Dehydration [Unknown]
  - Peripheral swelling [Unknown]
  - Back disorder [Not Recovered/Not Resolved]
  - Wound dehiscence [Unknown]
  - Insomnia [Unknown]
  - Back pain [Unknown]
  - Device issue [Unknown]
  - Cataract [Unknown]
  - Hip arthroplasty [Recovering/Resolving]
  - Knee arthroplasty [Recovering/Resolving]
  - Rheumatoid arthritis [Unknown]
  - Dyspnoea exertional [Not Recovered/Not Resolved]
  - Vitamin B12 deficiency [Not Recovered/Not Resolved]

NARRATIVE: CASE EVENT DATE: 2017
